FAERS Safety Report 19930286 (Version 1)
Quarter: 2021Q4

REPORT INFORMATION
  Report Type: Spontaneous
  Country: CN (occurrence: CN)
  Receive Date: 20211007
  Receipt Date: 20211007
  Transmission Date: 20220303
  Serious: Yes (Other)
  Sender: FDA-Public Use
  Company Number: 2021A756787

PATIENT
  Age: 27394 Day
  Sex: Female
  Weight: 50 kg

DRUGS (6)
  1. BUDESONIDE [Suspect]
     Active Substance: BUDESONIDE
     Indication: Pneumonia
     Route: 055
     Dates: start: 20210922, end: 20210924
  2. BUDESONIDE [Suspect]
     Active Substance: BUDESONIDE
     Indication: Arteriosclerosis
     Route: 055
     Dates: start: 20210922, end: 20210924
  3. BUDESONIDE [Suspect]
     Active Substance: BUDESONIDE
     Indication: Bronchitis chronic
     Route: 055
     Dates: start: 20210922, end: 20210924
  4. ACETYLCYSTEINE [Suspect]
     Active Substance: ACETYLCYSTEINE
     Indication: Pneumonia
     Route: 055
     Dates: start: 20210922, end: 20210924
  5. ACETYLCYSTEINE [Suspect]
     Active Substance: ACETYLCYSTEINE
     Indication: Arteriosclerosis
     Route: 055
     Dates: start: 20210922, end: 20210924
  6. ACETYLCYSTEINE [Suspect]
     Active Substance: ACETYLCYSTEINE
     Indication: Bronchitis chronic
     Route: 055
     Dates: start: 20210922, end: 20210924

REACTIONS (3)
  - Chest discomfort [Recovering/Resolving]
  - Dyspnoea [Recovering/Resolving]
  - Hyperhidrosis [Recovering/Resolving]

NARRATIVE: CASE EVENT DATE: 20210924
